FAERS Safety Report 22951232 (Version 4)
Quarter: 2024Q4

REPORT INFORMATION
  Report Type: Spontaneous
  Country: US (occurrence: US)
  Receive Date: 20230917
  Receipt Date: 20241229
  Transmission Date: 20250115
  Serious: No
  Sender: LUPIN
  Company Number: US-LUPIN PHARMACEUTICALS INC.-2023-07790

PATIENT

DRUGS (2)
  1. ALBUTEROL SULFATE [Suspect]
     Active Substance: ALBUTEROL SULFATE
     Indication: Chronic obstructive pulmonary disease
     Dosage: UNK, QID, 2 PUFFS
     Dates: start: 2023
  2. ESTROGENS [Concomitant]
     Active Substance: ESTROGENS
     Indication: Urinary tract infection
     Dosage: UNK, QW (ONCE A WEEK)
     Route: 065

REACTIONS (3)
  - Wrong technique in product usage process [Unknown]
  - Product taste abnormal [Unknown]
  - No adverse event [Unknown]
